FAERS Safety Report 10602927 (Version 2)
Quarter: 2015Q3

REPORT INFORMATION
  Report Type: Spontaneous
  Country: US (occurrence: US)
  Receive Date: 20141124
  Receipt Date: 20150805
  Transmission Date: 20151125
  Serious: Yes (Hospitalization)
  Sender: FDA-Public Use
  Company Number: US-TAKEDA-2014TUS011513

PATIENT
  Age: 40 Year
  Sex: Female

DRUGS (4)
  1. METHOTREXATE [Concomitant]
     Active Substance: METHOTREXATE
     Indication: CROHN^S DISEASE
     Dosage: 25 MG, UNK
     Dates: start: 201403
  2. ENTYVIO [Suspect]
     Active Substance: VEDOLIZUMAB
     Indication: CROHN^S DISEASE
     Dosage: FIRST DOSE
     Route: 042
     Dates: start: 20141020, end: 20141020
  3. ENTYVIO [Suspect]
     Active Substance: VEDOLIZUMAB
     Dosage: SECOND DOSE
     Route: 042
     Dates: start: 20141103, end: 20141103
  4. HUMIRA [Suspect]
     Active Substance: ADALIMUMAB
     Indication: PRODUCT USED FOR UNKNOWN INDICATION
     Dosage: 40 MG, 1/WEEK
     Route: 065
     Dates: start: 201212, end: 20141010

REACTIONS (2)
  - Histoplasmosis disseminated [Recovering/Resolving]
  - Thrombocytopenia [Recovering/Resolving]
